FAERS Safety Report 15990088 (Version 1)
Quarter: 2019Q1

REPORT INFORMATION
  Report Type: Spontaneous
  Country: US (occurrence: US)
  Receive Date: 20190127
  Receipt Date: 20190127
  Transmission Date: 20190418
  Serious: No
  Sender: FDA-Public Use
  Company Number: None

PATIENT
  Age: 62 Year
  Sex: Female

DRUGS (1)
  1. FORTEO [Suspect]
     Active Substance: TERIPARATIDE
     Route: 058
     Dates: start: 201707

REACTIONS (4)
  - Device use error [None]
  - Dizziness [None]
  - Extra dose administered [None]
  - Nausea [None]

NARRATIVE: CASE EVENT DATE: 20190127
